FAERS Safety Report 19303422 (Version 2)
Quarter: 2021Q2

REPORT INFORMATION
  Report Type: Spontaneous
  Country: US (occurrence: US)
  Receive Date: 20210525
  Receipt Date: 20210630
  Transmission Date: 20210717
  Serious: No
  Sender: FDA-Public Use
  Company Number: US-PFIZER INC-2021531509

PATIENT

DRUGS (1)
  1. DEPO?PROVERA [Suspect]
     Active Substance: MEDROXYPROGESTERONE ACETATE
     Dosage: UNK

REACTIONS (3)
  - Needle issue [Unknown]
  - Syringe issue [Unknown]
  - Incorrect dose administered by device [Unknown]
